FAERS Safety Report 4489421-9 (Version None)
Quarter: 2004Q4

REPORT INFORMATION
  Report Type: 
  Country: None (occurrence: None)
  Receive Date: 20041101
  Receipt Date: 20041021
  Transmission Date: 20050328
  Serious: Yes (Other)
  Sender: FDA-Public Use
  Company Number: US-ABBOTT-04P-163-0278304-00

PATIENT
  Sex: Female

DRUGS (15)
  1. DEPAKENE ORAL SOLUTION [Suspect]
     Indication: AFFECT LABILITY
     Route: 048
     Dates: start: 20040413
  2. CLOZAPINE [Suspect]
     Indication: BIPOLAR DISORDER
     Dosage: 50 MG Q AM, 75 MG Q PM
     Route: 048
     Dates: start: 20040201, end: 20040811
  3. CLOZAPINE [Suspect]
     Dates: start: 20040818
  4. PANTOPRAZOLE [Concomitant]
     Indication: GASTROOESOPHAGEAL REFLUX DISEASE
     Route: 048
  5. GLIBENCLAMIDE [Concomitant]
     Indication: DIABETES MELLITUS
     Route: 048
  6. PIOGLITAZONE HCL [Concomitant]
     Indication: DIABETES MELLITUS
     Route: 048
  7. METFORMIN HCL [Concomitant]
     Indication: DIABETES MELLITUS
     Route: 048
  8. LISINOPRIL [Concomitant]
     Indication: HYPERTENSION
     Route: 048
  9. LEVOTHYROXINE SODIUM [Concomitant]
     Indication: HYPOTHYROIDISM
     Route: 048
  10. FUROSEMIDE [Concomitant]
     Indication: CARDIAC FAILURE CONGESTIVE
     Route: 048
  11. METOPROLOL SUCCINATE [Concomitant]
     Indication: ARTERIOSCLEROSIS
     Route: 048
  12. SENNA [Concomitant]
     Indication: CONSTIPATION
     Route: 048
  13. DOCUSATE [Concomitant]
     Indication: CONSTIPATION
     Route: 048
  14. EPOETIN ALFA [Concomitant]
     Indication: RED BLOOD CELL COUNT DECREASED
     Route: 058
  15. EPOETIN ALFA [Concomitant]
     Indication: ANAEMIA

REACTIONS (8)
  - CHILLS [None]
  - DRUG WITHDRAWAL SYNDROME [None]
  - DYSPHORIA [None]
  - INFLUENZA LIKE ILLNESS [None]
  - INSOMNIA [None]
  - NEUTROPENIA [None]
  - PAIN [None]
  - SUICIDAL IDEATION [None]
